FAERS Safety Report 21418282 (Version 1)
Quarter: 2022Q4

REPORT INFORMATION
  Report Type: Spontaneous
  Country: US (occurrence: None)
  Receive Date: 20221005
  Receipt Date: 20221005
  Transmission Date: 20230113
  Serious: Yes (Life-Threatening, Disabling, Other)
  Sender: FDA-Public Use
  Company Number: None

PATIENT
  Age: 29 Year
  Sex: Male
  Weight: 83.25 kg

DRUGS (11)
  1. MINOXIDIL [Suspect]
     Active Substance: MINOXIDIL
     Indication: Alopecia
     Dates: start: 20200504, end: 20210806
  2. ZINC [Concomitant]
     Active Substance: ZINC
  3. VITAMIN D [Concomitant]
     Active Substance: VITAMIN D NOS
  4. VITAMIN E [Concomitant]
     Active Substance: .ALPHA.-TOCOPHEROL
  5. VITAMIN B12 [Concomitant]
     Active Substance: CYANOCOBALAMIN
  6. PEA [Concomitant]
     Active Substance: PEA
  7. HORSE CHESTNUT [Concomitant]
     Active Substance: HORSE CHESTNUT
  8. NAC [Concomitant]
  9. POTASSIUM GLUCONATE [Concomitant]
  10. BLACK SEED OIL [Concomitant]
  11. OREGANO OIL [Concomitant]

REACTIONS (8)
  - Erectile dysfunction [None]
  - Loss of libido [None]
  - Anhedonia [None]
  - Muscle twitching [None]
  - Depression [None]
  - Arthralgia [None]
  - Prostatitis [None]
  - Economic problem [None]

NARRATIVE: CASE EVENT DATE: 20210806
